FAERS Safety Report 16394423 (Version 1)
Quarter: 2019Q2

REPORT INFORMATION
  Report Type: Report from Study
  Country: CA (occurrence: CA)
  Receive Date: 20190605
  Receipt Date: 20190605
  Transmission Date: 20190711
  Serious: Yes (Other)
  Sender: FDA-Public Use
  Company Number: CA-PFIZER INC-2019233584

PATIENT
  Age: 69 Year
  Sex: Female

DRUGS (2)
  1. REPATHA [Suspect]
     Active Substance: EVOLOCUMAB
     Indication: TYPE IIA HYPERLIPIDAEMIA
     Dosage: UNK
     Route: 065
  2. LYRICA [Suspect]
     Active Substance: PREGABALIN
     Dosage: UNK
     Route: 065

REACTIONS (11)
  - Angina pectoris [Unknown]
  - Feeling of body temperature change [Unknown]
  - Hot flush [Unknown]
  - Nausea [Unknown]
  - Hyperhidrosis [Unknown]
  - Chills [Unknown]
  - Eye pain [Unknown]
  - Dyspnoea [Unknown]
  - Headache [Unknown]
  - Palpitations [Unknown]
  - Weight increased [Unknown]
